FAERS Safety Report 17665379 (Version 2)
Quarter: 2020Q2

REPORT INFORMATION
  Report Type: Spontaneous
  Country: CN (occurrence: CN)
  Receive Date: 20200414
  Receipt Date: 20200414
  Transmission Date: 20200713
  Serious: Yes (Other)
  Sender: FDA-Public Use
  Company Number: CN-PFIZER INC-2020149194

PATIENT
  Age: 48 Year
  Sex: Female

DRUGS (9)
  1. CISPLATIN. [Suspect]
     Active Substance: CISPLATIN
     Dosage: 75 MG/M2, CYCLIC (USED ON THE FIRST AND SECOND DAY,  REPEATED EVERY FOUR WEEKS)
     Route: 042
     Dates: start: 20171229
  2. DOCETAXEL. [Suspect]
     Active Substance: DOCETAXEL
     Dosage: 75 MG/M2, MONTHLY  (ON THE FIRST DAY, REPEATED EVERY FOUR WEEKS)
     Route: 042
     Dates: start: 20171130
  3. FLUOROURACIL. [Suspect]
     Active Substance: FLUOROURACIL
     Dosage: 500 MG/M2, CYCLIC (USED FROM THE FIRST DAY TO FIFTH DAY )
     Dates: start: 20171130
  4. DOCETAXEL. [Suspect]
     Active Substance: DOCETAXEL
     Dosage: 75 MG/M2, MONTHLY  (ON THE FIRST DAY, REPEATED EVERY FOUR WEEKS)
     Route: 042
     Dates: start: 20171229
  5. FLUOROURACIL. [Suspect]
     Active Substance: FLUOROURACIL
     Indication: KERATINISING SQUAMOUS CELL CARCINOMA OF NASOPHARYNX
     Dosage: 500 MG/M2, CYCLIC (USED FROM THE FIRST DAY TO FIFTH DAY )
     Dates: start: 20171031
  6. CISPLATIN. [Suspect]
     Active Substance: CISPLATIN
     Indication: KERATINISING SQUAMOUS CELL CARCINOMA OF NASOPHARYNX
     Dosage: 75 MG/M2, CYCLIC (USED ON THE FIRST AND SECOND DAY,  REPEATED EVERY FOUR WEEKS)
     Route: 042
     Dates: start: 20171031
  7. CISPLATIN. [Suspect]
     Active Substance: CISPLATIN
     Dosage: 75 MG/M2, CYCLIC (USED ON THE FIRST AND SECOND DAY,  REPEATED EVERY FOUR WEEKS)
     Route: 042
     Dates: start: 20171130
  8. DOCETAXEL. [Suspect]
     Active Substance: DOCETAXEL
     Indication: KERATINISING SQUAMOUS CELL CARCINOMA OF NASOPHARYNX
     Dosage: 75 MG/M2, MONTHLY  (ON THE FIRST DAY, REPEATED EVERY FOUR WEEKS)
     Route: 042
     Dates: start: 20171031
  9. FLUOROURACIL. [Suspect]
     Active Substance: FLUOROURACIL
     Dosage: 500 MG/M2, CYCLIC (USED FROM THE FIRST DAY TO FIFTH DAY )
     Dates: start: 20171229

REACTIONS (1)
  - Optic ischaemic neuropathy [Recovered/Resolved]

NARRATIVE: CASE EVENT DATE: 20180105
